FAERS Safety Report 6491263-X (Version None)
Quarter: 2009Q4

REPORT INFORMATION
  Report Type: 
  Country: None (occurrence: None)
  Receive Date: 20091211
  Receipt Date: 20091202
  Transmission Date: 20100525
  Serious: Yes (Hospitalization, Other)
  Sender: FDA-Public Use
  Company Number: PHHY2009BR53192

PATIENT
  Age: 63 Year
  Sex: Male
  Weight: 75 kg

DRUGS (6)
  1. DIOVAN AMLO FIX [Suspect]
     Indication: HYPERTENSION
     Dosage: 1 DF (320/5 MG) DAILY
     Route: 048
  2. ZYPREXA [Concomitant]
     Indication: SCHIZOPHRENIA
     Dosage: 1 TABLET AT NIGHT
  3. RIVOTRIL [Concomitant]
     Indication: SLEEP DISORDER
     Dosage: 2 MG TABLET AT NIGHT
  4. ATENSINA [Concomitant]
     Dosage: 1 TABLET DAILY
  5. ATENOLOL [Concomitant]
     Dosage: 1 TABLET DAILY
  6. PROMETHAZINE [Concomitant]
     Indication: HYPERSENSITIVITY
     Dosage: ONE TABLET AT NIGHT

REACTIONS (6)
  - AGITATION [None]
  - HUNTINGTON'S CHOREA [None]
  - HYPERTENSION [None]
  - PRURITUS [None]
  - PRURITUS GENERALISED [None]
  - PRURITUS GENITAL [None]
